FAERS Safety Report 7368641-X (Version None)
Quarter: 2011Q1

REPORT INFORMATION
  Report Type: 
  Country: None (occurrence: None)
  Receive Date: 20110323
  Receipt Date: 20110314
  Transmission Date: 20110831
  Serious: Yes (Hospitalization)
  Sender: FDA-Public Use
  Company Number: CN-NOVOPROD-325024

PATIENT
  Age: 60 Year
  Sex: Male

DRUGS (4)
  1. NOVOMIX 30 [Suspect]
     Indication: DIABETES MELLITUS
     Dosage: UNK U, UNK
     Route: 058
  2. NOVOLIN R [Suspect]
     Indication: DIABETES MELLITUS
     Dosage: BEFORE MORNING AND EVENING MEALS
     Route: 058
  3. NOVOLIN N [Suspect]
     Indication: DIABETES MELLITUS
     Dosage: AT BEDTIME.
     Route: 058
  4. NOVOLIN R [Suspect]
     Indication: DIABETES MELLITUS
     Dosage: BEFORE EACH MEAL
     Route: 058

REACTIONS (3)
  - INJECTION SITE NODULE [None]
  - BLOOD GLUCOSE INCREASED [None]
  - INJECTION SITE PRURITUS [None]
